FAERS Safety Report 21585233 (Version 1)
Quarter: 2022Q4

REPORT INFORMATION
  Report Type: Spontaneous
  Country: US (occurrence: US)
  Receive Date: 20221111
  Receipt Date: 20221111
  Transmission Date: 20230112
  Serious: No
  Sender: FDA-Public Use
  Company Number: US-MYLANLABS-2022M1121828

PATIENT
  Sex: Female

DRUGS (1)
  1. WIXELA INHUB [Suspect]
     Active Substance: FLUTICASONE PROPIONATE\SALMETEROL XINAFOATE
     Indication: Dyspnoea
     Dosage: 100/50 MICROGRAM, BID (ONE PUFF IN THE MORNING AND ONE PUFF IN THE EVENING)
     Route: 055

REACTIONS (2)
  - Off label use [Unknown]
  - Device issue [Unknown]
